FAERS Safety Report 25863357 (Version 1)
Quarter: 2025Q3

REPORT INFORMATION
  Report Type: Spontaneous
  Country: US (occurrence: US)
  Receive Date: 20250930
  Receipt Date: 20250930
  Transmission Date: 20251021
  Serious: Yes (Other)
  Sender: RANBAXY
  Company Number: US-SUN PHARMACEUTICAL INDUSTRIES LTD-2025R1-529112

PATIENT
  Sex: Female
  Weight: 2.594 kg

DRUGS (1)
  1. BACLOFEN [Suspect]
     Active Substance: BACLOFEN
     Indication: Cerebral palsy
     Dosage: 400 MCG, QD
     Route: 064

REACTIONS (2)
  - Hearing disability [Unknown]
  - Foetal exposure during pregnancy [Unknown]
